FAERS Safety Report 9057742 (Version 2)
Quarter: 2013Q1

REPORT INFORMATION
  Report Type: Spontaneous
  Country: IN (occurrence: IN)
  Receive Date: 20130204
  Receipt Date: 20130213
  Transmission Date: 20140127
  Serious: Yes (Death)
  Sender: FDA-Public Use
  Company Number: IN-009507513-1301IND013370

PATIENT
  Age: 58 Year
  Sex: Female

DRUGS (1)
  1. CASPOFUNGIN ACETATE [Suspect]
     Indication: BRONCHOPULMONARY ASPERGILLOSIS
     Dosage: 70 MG, ONCE, INFUSION OVER A PERIOD OF 1 HOUR
     Route: 041

REACTIONS (1)
  - Atrioventricular block [Fatal]
